FAERS Safety Report 7345520-5 (Version None)
Quarter: 2011Q1

REPORT INFORMATION
  Report Type: 
  Country: None (occurrence: None)
  Receive Date: 20110310
  Receipt Date: 20110228
  Transmission Date: 20110831
  Serious: Yes (Hospitalization, Other)
  Sender: FDA-Public Use
  Company Number: US-ASTRAZENECA-2010SE21479

PATIENT
  Age: 67 Year
  Sex: Female
  Weight: 86.2 kg

DRUGS (17)
  1. HYDROCODONE BITARTRATE [Concomitant]
     Indication: PAIN
  2. NEXIUM [Suspect]
     Route: 048
  3. SEROQUEL [Suspect]
     Indication: ANTIDEPRESSANT THERAPY
     Route: 048
     Dates: start: 20090101, end: 20100601
  4. SEROQUEL [Suspect]
     Indication: SLEEP DISORDER
     Route: 048
     Dates: start: 20090101, end: 20100601
  5. SEROQUEL [Suspect]
     Indication: ANXIETY
     Route: 048
     Dates: start: 20090101, end: 20100601
  6. SEROQUEL [Suspect]
     Route: 048
  7. METHOCARBAMOL [Concomitant]
     Indication: PAIN
  8. SEROQUEL [Suspect]
     Route: 048
     Dates: start: 20100601, end: 20100101
  9. SEROQUEL [Suspect]
     Route: 048
     Dates: start: 20100601, end: 20100101
  10. SEROQUEL [Suspect]
     Route: 048
     Dates: start: 20100601, end: 20100101
  11. SEROQUEL [Suspect]
     Route: 048
  12. CITALOPRAM [Concomitant]
     Indication: DEPRESSION
  13. CLONAZEPAM [Concomitant]
     Indication: ANXIETY
  14. ATIVAN [Concomitant]
     Indication: ANXIETY
  15. ROBAXIN [Concomitant]
     Indication: MUSCLE SPASMS
  16. BLOOD PRESSURE MED [Concomitant]
     Indication: HYPERTENSION
  17. SEROQUEL [Suspect]
     Route: 048

REACTIONS (13)
  - SURGERY [None]
  - RENAL FAILURE ACUTE [None]
  - MIDDLE INSOMNIA [None]
  - FATIGUE [None]
  - CEREBRAL HAEMORRHAGE [None]
  - INSOMNIA [None]
  - DIZZINESS [None]
  - POOR QUALITY SLEEP [None]
  - TREMOR [None]
  - NERVOUSNESS [None]
  - SOMNOLENCE [None]
  - ABNORMAL DREAMS [None]
  - DRUG DOSE OMISSION [None]
